FAERS Safety Report 6213911-1 (Version None)
Quarter: 2009Q2

REPORT INFORMATION
  Report Type: 
  Country: None (occurrence: None)
  Receive Date: 20090604
  Receipt Date: 20090529
  Transmission Date: 20091009
  Serious: Yes (Other)
  Sender: FDA-Public Use
  Company Number: CA-SP-2009-02322

PATIENT
  Age: 82 Year
  Sex: Male

DRUGS (1)
  1. BCG  THERAPEUTICS [Suspect]
     Indication: BLADDER TRANSITIONAL CELL CARCINOMA
     Dosage: NOT REPORTED
     Route: 043
     Dates: start: 20051001, end: 20060101

REACTIONS (6)
  - CYSTITIS [None]
  - EPIDIDYMITIS TUBERCULOUS [None]
  - MALAISE [None]
  - PYREXIA [None]
  - SCROTAL MASS [None]
  - SCROTAL PAIN [None]
